FAERS Safety Report 17930178 (Version 4)
Quarter: 2020Q3

REPORT INFORMATION
  Report Type: Report from Study
  Country: ES (occurrence: ES)
  Receive Date: 20200623
  Receipt Date: 20200720
  Transmission Date: 20201104
  Serious: Yes (Death)
  Sender: FDA-Public Use
  Company Number: ES-PFIZER INC-2020233061

PATIENT
  Age: 78 Year
  Sex: Male
  Weight: 67.9 kg

DRUGS (8)
  1. TAMULOSIN [Concomitant]
     Active Substance: TAMSULOSIN
     Indication: NEOPLASM MALIGNANT
     Dosage: 0.4 MG, DAILY (REPORTED AS MOST RECENT DOSE)
     Route: 048
     Dates: start: 2008
  2. ATORVASTATIN [Concomitant]
     Active Substance: ATORVASTATIN
     Indication: HYPERCHOLESTEROLAEMIA
     Dosage: 40 MG, DAILY (REPORTED AS MOST RECENT DOSE)
     Route: 048
     Dates: start: 2008
  3. ELIGARD [Concomitant]
     Active Substance: LEUPROLIDE ACETATE
     Indication: NEOPLASM MALIGNANT
     Dosage: 45 MG (REPORTED AS MOST RECENT DOSE), TWICE A YEAR
     Route: 030
     Dates: start: 20191120
  4. PANTOPRAZOLE [Concomitant]
     Active Substance: PANTOPRAZOLE
     Indication: GASTRITIS PROPHYLAXIS
     Dosage: 20 MG, DAILY (REPORTED AS MOST RECENT DOSE)
     Route: 048
     Dates: start: 2008
  5. TALAZOPARIB. [Suspect]
     Active Substance: TALAZOPARIB
     Indication: PROSTATE CANCER METASTATIC
     Dosage: 0.35MG, CYCLIC
     Route: 048
     Dates: start: 20200330, end: 20200613
  6. ENZALUTAMIDE [Suspect]
     Active Substance: ENZALUTAMIDE
     Indication: PROSTATE CANCER METASTATIC
     Dosage: 160 MG, CYCLIC
     Route: 048
     Dates: start: 20200330, end: 20200613
  7. ADIRO [Concomitant]
     Active Substance: ASPIRIN
     Indication: HYPERTENSION
     Dosage: 100 MG, DAILY (REPORTED AS MOST RECENT DOSE)
     Route: 048
     Dates: start: 2008
  8. ULTIBRO BREEZHALER [Concomitant]
     Active Substance: GLYCOPYRRONIUM\INDACATEROL
     Indication: CHRONIC OBSTRUCTIVE PULMONARY DISEASE
     Dosage: 1 DF, DAILY (1 CAPSULE, DAILY) (REPORTED AS MOST RECENT DOSE)
     Route: 055
     Dates: start: 2008

REACTIONS (1)
  - Sudden death [Fatal]

NARRATIVE: CASE EVENT DATE: 20200613
